FAERS Safety Report 21014842 (Version 1)
Quarter: 2022Q2

REPORT INFORMATION
  Report Type: Report from Study
  Country: US (occurrence: US)
  Receive Date: 20220628
  Receipt Date: 20220628
  Transmission Date: 20220721
  Serious: Yes (Other)
  Sender: FDA-Public Use
  Company Number: US-ABBVIE-22K-163-4447097-00

PATIENT
  Sex: Female

DRUGS (1)
  1. HUMIRA [Suspect]
     Active Substance: ADALIMUMAB
     Indication: Product used for unknown indication
     Route: 058

REACTIONS (6)
  - Internal haemorrhage [Not Recovered/Not Resolved]
  - Weight decreased [Unknown]
  - Intracranial aneurysm [Unknown]
  - Spinal stenosis [Unknown]
  - Immunisation reaction [Unknown]
  - Anaemia [Unknown]
